FAERS Safety Report 5451863-2 (Version None)
Quarter: 2007Q3

REPORT INFORMATION
  Report Type: 
  Country: None (occurrence: None)
  Receive Date: 20070912
  Receipt Date: 20070828
  Transmission Date: 20080115
  Serious: Yes (Other)
  Sender: FDA-Public Use
  Company Number: 2007S1008546

PATIENT
  Age: 9 Year
  Sex: Male

DRUGS (2)
  1. CYSTAGON [Suspect]
     Indication: CYSTINOSIS
     Dosage: DAILY;ORAL, 19.4 MG/KG;DAILY;ORAL, 36 MG/KG;DAILY;ORAL, DAILY;ORAL
     Route: 048
     Dates: end: 20070828
  2. CYSTAGON [Suspect]
     Indication: CYSTINOSIS
     Dosage: DAILY;ORAL, 19.4 MG/KG;DAILY;ORAL, 36 MG/KG;DAILY;ORAL, DAILY;ORAL
     Route: 048
     Dates: start: 20070828

REACTIONS (3)
  - IMPETIGO [None]
  - JOINT STIFFNESS [None]
  - OSTEONECROSIS [None]
